FAERS Safety Report 5854889-X (Version None)
Quarter: 2008Q3

REPORT INFORMATION
  Report Type: 
  Country: None (occurrence: None)
  Receive Date: 20080822
  Receipt Date: 20080305
  Transmission Date: 20090109
  Serious: No
  Sender: FDA-Public Use
  Company Number: US-ABBOTT-08P-163-0441233-00

PATIENT
  Sex: Male
  Weight: 81.266 kg

DRUGS (6)
  1. SYNTHROID [Suspect]
     Indication: THYROIDECTOMY
     Dosage: EXCEPT 100MCG EVERY OTHER SUNDAY
     Route: 048
     Dates: start: 20060701
  2. SYNTHROID [Suspect]
     Route: 048
     Dates: start: 20050101, end: 20060701
  3. HYPOTEARS DDPF [Concomitant]
     Indication: DRUG USE FOR UNKNOWN INDICATION
  4. LEUPROLIDE ACETATE [Concomitant]
     Indication: PROSTATE CANCER
  5. INSULIN LISPRO [Concomitant]
     Indication: DIABETES MELLITUS
     Route: 058
  6. MIXTARD HUMAN 70/30 [Concomitant]
     Indication: DIABETES MELLITUS
     Dosage: 12 UNITS EVERY AM AND 8 UNITS EVERY PM
     Route: 058

REACTIONS (4)
  - EYELID DISORDER [None]
  - LACRIMATION INCREASED [None]
  - PHOTOPHOBIA [None]
  - THROMBOSIS [None]
